FAERS Safety Report 9391321 (Version 1)
Quarter: 2013Q3

REPORT INFORMATION
  Report Type: Spontaneous
  Country: CN (occurrence: CN)
  Receive Date: 20130709
  Receipt Date: 20130709
  Transmission Date: 20140515
  Serious: Yes (Other)
  Sender: FDA-Public Use
  Company Number: CN-PFIZER INC-2013197789

PATIENT
  Age: 25 Year
  Sex: Male
  Weight: 60 kg

DRUGS (6)
  1. PROPOFOL [Suspect]
     Indication: ANAESTHESIA
     Dosage: 2 MG/KG
  2. VECURONIUM BROMIDE [Suspect]
     Indication: ANAESTHESIA
     Dosage: 0.1 MG/KG
  3. FENTANYL [Suspect]
     Indication: ANAESTHESIA
     Dosage: 1.5 UG/KG
  4. ISOFLURANE [Suspect]
     Indication: ANAESTHESIA
     Dosage: 1-2 VOL% IN OXYGEN
     Route: 055
  5. PHENOBARBITAL SODIUM [Concomitant]
     Indication: PREMEDICATION
     Dosage: 100 MG
     Route: 030
  6. ATROPINE [Concomitant]
     Indication: PREMEDICATION
     Dosage: 0.5 MG
     Route: 030

REACTIONS (5)
  - Hyperthermia malignant [Recovered/Resolved]
  - Rhabdomyolysis [Recovered/Resolved]
  - Acute respiratory distress syndrome [Recovered/Resolved]
  - Renal failure acute [Recovered/Resolved]
  - Disseminated intravascular coagulation [Recovered/Resolved]
